FAERS Safety Report 7436731-9 (Version None)
Quarter: 2011Q2

REPORT INFORMATION
  Report Type: 
  Country: None (occurrence: None)
  Receive Date: 20110426
  Receipt Date: 20110420
  Transmission Date: 20111010
  Serious: Yes (Death)
  Sender: FDA-Public Use
  Company Number: US-ELI_LILLY_AND_COMPANY-US201104006565

PATIENT
  Sex: Female
  Weight: 78.912 kg

DRUGS (25)
  1. MORPHINE [Concomitant]
     Dosage: 30 MG, EVERY 8 HRS
     Route: 048
     Dates: start: 20101223
  2. NUCYNTA [Concomitant]
     Indication: PAIN
     Dosage: 50 MG, QID
     Route: 048
     Dates: start: 20101201
  3. OXCARBAZEPINE [Concomitant]
     Dosage: 300 MG, EACH MORNING
     Route: 048
     Dates: start: 20100729
  4. STRATTERA [Suspect]
     Dosage: 80 MG, EACH MORNING
     Route: 048
     Dates: start: 20101223, end: 20110125
  5. EFFEXOR [Concomitant]
     Dosage: 150 MG, QD
     Route: 048
     Dates: start: 20101014, end: 20101222
  6. PERCOCET [Concomitant]
     Indication: PAIN
     Dosage: UNK, PRN
     Route: 048
     Dates: start: 20101014
  7. PRILOSEC [Concomitant]
     Indication: GASTROOESOPHAGEAL REFLUX DISEASE
     Dosage: 40 MG, EACH MORNING
     Route: 048
     Dates: start: 20101020
  8. PROMETHAZINE [Concomitant]
     Indication: NAUSEA
     Dosage: 25 MG, PRN
     Route: 048
     Dates: start: 20100915
  9. SOMA [Concomitant]
     Indication: MUSCLE SPASMS
     Dosage: 350 MG, QID
     Route: 048
     Dates: start: 20101223
  10. VENLAFAXINE HCL [Concomitant]
     Dosage: 225 MG, QD
     Route: 048
     Dates: start: 20101223
  11. CALCIUM CARBONATE W/VITAMIN D NOS [Concomitant]
     Dosage: 1 DF, BID
     Route: 048
     Dates: start: 20101026
  12. OXCARBAZEPINE [Concomitant]
     Dosage: 450 MG, EACH EVENING
     Route: 048
  13. ADDERALL 10 [Concomitant]
     Dosage: 15 MG, TID
     Route: 048
     Dates: start: 20101223
  14. AMBIEN [Concomitant]
     Indication: INSOMNIA
     Dosage: 10 MG, EACH EVENING
     Route: 048
     Dates: start: 20101014, end: 20110106
  15. GABAPENTIN [Concomitant]
     Dosage: 300 MG, TID
     Route: 048
     Dates: start: 20100913
  16. NORTRIPTYLINE [Concomitant]
     Dosage: 75 MG, QD
     Route: 048
     Dates: start: 20101223
  17. PRAVASTATIN SODIUM [Concomitant]
     Dosage: 20 MG, EACH EVENING
     Route: 048
     Dates: start: 20100729
  18. FUROSEMIDE [Concomitant]
     Indication: OEDEMA
     Dosage: 20 MG, EACH MORNING
     Route: 048
     Dates: start: 20100729
  19. POTASSIUM CHLORIDE [Concomitant]
     Dosage: 20 MEQ, QD
     Route: 048
     Dates: start: 20101026
  20. YAZ                                /06358701/ [Concomitant]
     Dosage: 1 DF, QD
     Route: 048
     Dates: start: 20101201
  21. BETAMETHASONE DIPROPIONATE [Concomitant]
     Indication: RASH PRURITIC
     Dosage: UNK, BID
     Route: 061
     Dates: start: 20100820
  22. CLONAZEPAM [Concomitant]
     Indication: PANIC ATTACK
     Dosage: 1 MG, BID
     Route: 048
     Dates: start: 20110114
  23. VENTOLIN HFA [Concomitant]
     Indication: DYSPNOEA
     Dosage: UNK, EVERY 6 HRS
     Route: 055
     Dates: start: 20100729
  24. ADDERALL 10 [Concomitant]
     Dosage: 10 MG, TID
     Route: 048
     Dates: start: 20101104, end: 20101222
  25. ZOLPIDEM TARTRATE [Concomitant]
     Indication: INSOMNIA
     Dosage: 10 MG, EACH EVENING
     Route: 048
     Dates: start: 20110107

REACTIONS (2)
  - INSOMNIA [None]
  - DEATH [None]
